FAERS Safety Report 26117736 (Version 1)
Quarter: 2025Q4

REPORT INFORMATION
  Report Type: Spontaneous
  Country: EU (occurrence: EU)
  Receive Date: 20251203
  Receipt Date: 20251203
  Transmission Date: 20260119
  Serious: Yes (Hospitalization)
  Sender: FRESENIUS KABI
  Company Number: None

PATIENT
  Age: 45 Year
  Sex: Male

DRUGS (3)
  1. LINEZOLID [Suspect]
     Active Substance: LINEZOLID
     Indication: Respiratory tract infection
     Dosage: 600/12H?FOA: SOLUTION FOR INFUSION
     Route: 042
     Dates: start: 20251121
  2. MEROPENEM [Suspect]
     Active Substance: MEROPENEM
     Indication: Respiratory tract infection
     Dosage: 1000 MG /8H?POWDER FOR SOLUTION FOR INJECTION/INFUSION
     Route: 042
     Dates: start: 20251116, end: 20251124
  3. LEVETIRACETAM NORMON 100 MG/ML CONCENTRATE FOR SOLUTION FOR INFUSION E [Concomitant]
     Indication: Post-traumatic epilepsy
     Dosage: 1250/12H
     Route: 042
     Dates: start: 20121019

REACTIONS (1)
  - Seizure [Recovered/Resolved]

NARRATIVE: CASE EVENT DATE: 20251122
